FAERS Safety Report 19497444 (Version 1)
Quarter: 2021Q3

REPORT INFORMATION
  Report Type: Spontaneous
  Country: US (occurrence: US)
  Receive Date: 20210706
  Receipt Date: 20210706
  Transmission Date: 20211014
  Serious: No
  Sender: FDA-Public Use
  Company Number: None

PATIENT
  Age: 25 Year
  Sex: Female
  Weight: 68.85 kg

DRUGS (5)
  1. AZITHROMYCIN TABLETS USP 250 MG [Suspect]
     Active Substance: AZITHROMYCIN MONOHYDRATE
     Indication: SINUSITIS
     Dosage: ?          QUANTITY:6 TABLET(S);?
     Route: 048
     Dates: start: 20210702, end: 20210706
  2. CIRCUMASORB [Concomitant]
  3. LEVOCETRIZINE [Concomitant]
     Active Substance: LEVOCETIRIZINE
  4. MAGNESIUM [Concomitant]
     Active Substance: MAGNESIUM
  5. ADDERALL XR [Concomitant]
     Active Substance: AMPHETAMINE ASPARTATE\AMPHETAMINE SULFATE\DEXTROAMPHETAMINE SACCHARATE\DEXTROAMPHETAMINE SULFATE

REACTIONS (1)
  - Diarrhoea [None]

NARRATIVE: CASE EVENT DATE: 20210705
